FAERS Safety Report 6345280-0 (Version None)
Quarter: 2009Q3

REPORT INFORMATION
  Report Type: 
  Country: None (occurrence: None)
  Receive Date: 20090909
  Receipt Date: 20080521
  Transmission Date: 20100115
  Serious: Yes (Congenital Anomaly, Other)
  Sender: FDA-Public Use
  Company Number: US-ASTRAZENECA-2007UW03820

PATIENT
  Age: 16947 Day
  Sex: Female
  Weight: 115.2 kg

DRUGS (12)
  1. SEROQUEL [Suspect]
     Indication: INSOMNIA
     Dosage: 100-900 MG
     Route: 048
     Dates: start: 20030101, end: 20060401
  2. SEROQUEL [Suspect]
     Dosage: 300-400 MG
     Route: 048
     Dates: start: 20050908
  3. SYNTHROID [Concomitant]
     Dosage: 0.1 MG QD, 112 MCG
     Route: 048
     Dates: start: 20031103
  4. REGLAN [Concomitant]
     Dosage: 5 MG/5 ML 2 TEASPOONS QID
     Route: 048
     Dates: start: 20040430
  5. CELEBREX [Concomitant]
     Indication: ARTHRALGIA
     Route: 048
     Dates: start: 20040430
  6. GLUCOTROL XL [Concomitant]
     Dosage: 2.5 MG HALF QAM 10 MIN BEFORE BREAKFAT
     Route: 048
     Dates: start: 20040430
  7. LIPITOR [Concomitant]
     Route: 048
     Dates: start: 20051229
  8. METFORMIN HCL [Concomitant]
     Dosage: 500 MG
     Dates: start: 20040610
  9. MUTAMYCIN [Concomitant]
     Dosage: 1 CAPSLUE BID
     Dates: start: 20040430
  10. VIOXX [Concomitant]
     Dates: start: 20040610
  11. NEXIUM [Concomitant]
     Dates: start: 20051226
  12. LEXAPRO [Concomitant]
     Dosage: 10 MG HALF QAM
     Route: 048
     Dates: start: 20051212

REACTIONS (8)
  - DIABETES MELLITUS [None]
  - DIABETES MELLITUS INADEQUATE CONTROL [None]
  - DIABETIC COMPLICATION [None]
  - DIABETIC GASTROPARESIS [None]
  - HYPOGLYCAEMIA [None]
  - INJURY [None]
  - TREATMENT NONCOMPLIANCE [None]
  - TYPE 2 DIABETES MELLITUS [None]
